FAERS Safety Report 7359087-9 (Version None)
Quarter: 2011Q1

REPORT INFORMATION
  Report Type: 
  Country: None (occurrence: None)
  Receive Date: 20110317
  Receipt Date: 20110218
  Transmission Date: 20110831
  Serious: Yes (Hospitalization, Other)
  Sender: FDA-Public Use
  Company Number: US-BAYER-201019638NA

PATIENT
  Sex: Female
  Weight: 63 kg

DRUGS (10)
  1. VITAMIN B-12 [Concomitant]
  2. YASMIN [Suspect]
     Indication: PREMENSTRUAL SYNDROME
     Route: 048
     Dates: start: 20030101, end: 20060101
  3. SINGULAIR [Concomitant]
     Indication: ASTHMA
  4. STRATTERA [Concomitant]
  5. NSAID'S [Concomitant]
  6. RITALIN [Concomitant]
     Dosage: UNK
     Dates: start: 20040101, end: 20070101
  7. YASMIN [Suspect]
     Indication: ORAL CONTRACEPTION
  8. PROZAC [Concomitant]
     Indication: PANIC DISORDER
     Dosage: UNK
     Dates: start: 19940101
  9. YASMIN [Suspect]
  10. SINGULAIR [Concomitant]
     Indication: RHINITIS
     Dosage: UNK
     Dates: start: 20030101

REACTIONS (14)
  - BALANCE DISORDER [None]
  - CONSTIPATION [None]
  - ABDOMINAL PAIN [None]
  - HYPERHIDROSIS [None]
  - ABDOMINAL DISTENSION [None]
  - COLD SWEAT [None]
  - CHOLELITHIASIS [None]
  - VOMITING [None]
  - DIARRHOEA [None]
  - DIZZINESS [None]
  - ATTENTION DEFICIT/HYPERACTIVITY DISORDER [None]
  - NAUSEA [None]
  - BILIARY COLIC [None]
  - ANXIETY [None]
